FAERS Safety Report 5326819-0 (Version None)
Quarter: 2007Q2

REPORT INFORMATION
  Report Type: 
  Country: None (occurrence: None)
  Receive Date: 20070516
  Receipt Date: 20070503
  Transmission Date: 20071010
  Serious: Yes (Hospitalization)
  Sender: FDA-Public Use
  Company Number: HK-GENENTECH-241474

PATIENT
  Sex: Female
  Weight: 56.4 kg

DRUGS (3)
  1. BEVACIZUMAB [Suspect]
     Indication: COLORECTAL CANCER METASTATIC
     Dosage: 5 MG/KG, QOW
     Route: 042
     Dates: start: 20051020, end: 20070428
  2. IRINOTECAN HCL [Suspect]
     Indication: COLORECTAL CANCER METASTATIC
     Dosage: 180 MG/M2, QOW
     Route: 042
     Dates: start: 20051025, end: 20070428
  3. FOLINIC ACID [Suspect]
     Indication: COLORECTAL CANCER METASTATIC
     Dosage: 200 MG/M2, QOW
     Route: 042
     Dates: start: 20051025, end: 20070428

REACTIONS (1)
  - LOCAL SWELLING [None]
